FAERS Safety Report 6215858-3 (Version None)
Quarter: 2009Q2

REPORT INFORMATION
  Report Type: 
  Country: None (occurrence: None)
  Receive Date: 20090605
  Receipt Date: 20071008
  Transmission Date: 20091009
  Serious: Yes (Other)
  Sender: FDA-Public Use
  Company Number: US-ASTRAZENECA-2007UW18709

PATIENT
  Age: 21646 Day
  Sex: Female
  Weight: 105.2 kg

DRUGS (69)
  1. SEROQUEL [Suspect]
     Indication: ANXIETY
     Route: 048
  2. SEROQUEL [Suspect]
     Indication: DEPRESSION
     Route: 048
  3. RISPERDAL [Concomitant]
  4. ZYPREXA [Concomitant]
  5. NEXIUM [Concomitant]
     Route: 048
     Dates: start: 20011001
  6. ATACAND [Concomitant]
     Route: 065
     Dates: start: 20070112
  7. ZOLOFT [Concomitant]
     Dates: start: 20080416
  8. CELEBREX [Concomitant]
     Dates: start: 20080416
  9. LORCET-HD [Concomitant]
     Indication: PAIN
     Dosage: 10/650 ONE TABLET EVERY 12 HOURS AS NEEDED, 10 AS REQUIRED
     Route: 048
     Dates: start: 20031211
  10. ALLOPURINOL [Concomitant]
     Dosage: 4-300 MG
     Dates: start: 20021203
  11. DEMADEX [Concomitant]
     Dates: start: 19990818
  12. NAPROXEN [Concomitant]
     Dates: start: 19991202
  13. CYCLOBENZAPR [Concomitant]
     Dates: start: 19990825
  14. NEURONTIN [Concomitant]
     Dates: start: 20011219
  15. ESTRATEST [Concomitant]
     Dosage: 1.251-2.5
     Dates: start: 19990330
  16. VASOTEC [Concomitant]
     Dates: start: 19990902
  17. RELION/NOVO [Concomitant]
     Dosage: STRENGTH-70/30
     Dates: start: 20020702
  18. FUROSEMIDE [Concomitant]
     Dosage: 20-80 MG
     Dates: start: 19990601
  19. DOXEPIN HCL [Concomitant]
     Dates: start: 19991202
  20. VICOPROFEN [Concomitant]
     Dates: start: 19990818
  21. PREMARIN [Concomitant]
     Dosage: 0.625-1.25 MG
     Dates: start: 20001202
  22. KLOR-CON [Concomitant]
     Dosage: 20 MEQ, ONE TABLET TWO TIMES A DAY (WITH FOOD), 20 IF 4 TID
     Dates: start: 20020117
  23. CLORAZ DIPOT [Concomitant]
     Dosage: 3.75-22.5 MG
     Dates: start: 20011105
  24. ACETAMINOPHEN AND HYDROCODONE BITARTRATE [Concomitant]
     Indication: PAIN
     Dosage: 5/500 MG, 7.5/650 MG, 10/500 MG, 10/650 MG, ONE TABLET EVERY 12 HOURS AS NEEDED
     Route: 048
     Dates: start: 20021004
  25. PREDNISONE [Concomitant]
     Dates: start: 20021020
  26. TRIAMTERENE AND HYDROCHLOROTHIAZIDE [Concomitant]
     Dosage: 75/50 MG
     Dates: start: 20040701
  27. PROPO N/APAP [Concomitant]
     Dosage: 100/650
     Dates: start: 20040729
  28. ALPRAZOLAM [Concomitant]
     Indication: PAIN
     Dosage: 0.5 MG ONE TABLET EVERY 8 HOURS AS NEEDED
     Route: 048
     Dates: start: 20040708
  29. AMITRIPTLINE HYDROCHLORIDE TAB [Concomitant]
     Dosage: 25-50 MG
     Dates: start: 20060613
  30. NABUMETONE [Concomitant]
     Dates: start: 20070123
  31. MUPIROCIN [Concomitant]
     Dosage: STRENGTH - 2 PERCENT
     Dates: start: 20070123
  32. ALLERGY RELIEF [Concomitant]
     Dates: start: 20070123
  33. METAXALONE [Concomitant]
     Dates: start: 20070213
  34. GLUCOPHAGE [Concomitant]
     Route: 048
     Dates: start: 19990902
  35. LORAZEPAM [Concomitant]
     Dates: start: 20001116
  36. METOCLOPRAM [Concomitant]
     Dates: start: 20001205
  37. ELOCON [Concomitant]
     Dosage: STRENGTH - 0.1 PERCENT
     Dates: start: 20001205
  38. PHENAZOPYRID [Concomitant]
     Dates: start: 20060214
  39. PREVACID [Concomitant]
     Dates: start: 19990402
  40. ULTRAM [Concomitant]
     Dates: start: 20010605
  41. BIAXIN [Concomitant]
     Dates: start: 20010806
  42. ARTHROTEC [Concomitant]
     Dates: start: 20010806
  43. CLARITIN-D [Concomitant]
     Dosage: 120/5 M
     Dates: start: 20010806
  44. APAP W/ CODEINE [Concomitant]
     Dosage: 300/60, 30 MG 1 TABLET 4 TIMES A DAY
     Route: 048
     Dates: start: 20010416
  45. NYSTAT/TRIAM [Concomitant]
     Dates: start: 20011101
  46. HUMULIN R [Concomitant]
     Dosage: 70/30, 1000 ML
     Dates: start: 19990902
  47. ALTACE [Concomitant]
     Indication: BLOOD PRESSURE
     Dosage: 5-10 MG
     Route: 048
     Dates: start: 20020103
  48. LAMISIL [Concomitant]
     Dates: start: 20020425
  49. PROMETHAZINE [Concomitant]
     Dates: start: 20030507
  50. PLETAL [Concomitant]
     Dates: start: 20030605
  51. PERCOCET [Concomitant]
     Indication: PAIN
     Dosage: 7.5-325 M, 1 OR 2 TABLETS EVERY 4 HOURS TO 6 HOURS AS NEEDED
     Route: 048
     Dates: start: 20030828
  52. GLUCOTROL XL [Concomitant]
     Route: 048
     Dates: start: 20030701
  53. LYRICA [Concomitant]
     Dates: start: 20060719
  54. EFFEXOR XR [Concomitant]
     Dates: start: 20060814
  55. CLARINEX [Concomitant]
     Dates: start: 20061130
  56. METOLAZONE [Concomitant]
     Dates: start: 20061206
  57. DUETACT [Concomitant]
  58. FAMOTIDINE [Concomitant]
     Dates: start: 20070228
  59. LACTULOSE [Concomitant]
     Dosage: STRENGTH - 10 GM/15
     Dates: start: 20070319
  60. DICLOFEN [Concomitant]
     Dates: start: 20070625
  61. TIZANIDINE HCL [Concomitant]
     Dates: start: 20070723
  62. NASONEX [Concomitant]
     Dates: start: 19990501
  63. BEXTRA [Concomitant]
     Indication: ARTHRITIS
     Route: 048
     Dates: start: 20030804
  64. DIPHENHYDRAM [Concomitant]
     Dates: start: 20040913
  65. CADUET [Concomitant]
     Dosage: 10/20 MG
     Dates: start: 20050509
  66. COLCHICIN [Concomitant]
     Indication: PAIN
     Dosage: 0.6 MG 2 TABLETS NOW THEN 1 EVERY 3 TO 4 HOURS
     Route: 048
     Dates: start: 20030701
  67. LANTUS [Concomitant]
     Dosage: 40 UNITS AT BEDTIME
     Dates: start: 20040806
  68. FERROUS SULFATE TAB [Concomitant]
     Dosage: BID, STRENGTH - 325 MG
     Dates: start: 20061218
  69. MULTIFOL [Concomitant]
     Dates: start: 20001205

REACTIONS (4)
  - DIABETES MELLITUS [None]
  - HYPERTENSIVE HEART DISEASE [None]
  - TYPE 1 DIABETES MELLITUS [None]
  - TYPE 2 DIABETES MELLITUS [None]
